FAERS Safety Report 8423752-2 (Version None)
Quarter: 2012Q2

REPORT INFORMATION
  Report Type: 
  Country: None (occurrence: None)
  Receive Date: 20120608
  Receipt Date: 20110919
  Transmission Date: 20120825
  Serious: No
  Sender: FDA-Public Use
  Company Number: US-ASTRAZENECA-2011SE56385

PATIENT
  Sex: Female

DRUGS (2)
  1. ATACAND [Suspect]
     Route: 048
  2. CRESTOR [Concomitant]

REACTIONS (3)
  - MALAISE [None]
  - WRONG TECHNIQUE IN DRUG USAGE PROCESS [None]
  - BLOOD PRESSURE FLUCTUATION [None]
